FAERS Safety Report 18397233 (Version 1)
Quarter: 2020Q4

REPORT INFORMATION
  Report Type: Spontaneous
  Country: US (occurrence: US)
  Receive Date: 20201016
  Receipt Date: 20201016
  Transmission Date: 20210114
  Serious: Yes (Other)
  Sender: FDA-Public Use
  Company Number: None

PATIENT
  Age: 53 Year
  Sex: Female
  Weight: 63 kg

DRUGS (2)
  1. DYSPORT [Suspect]
     Active Substance: ABOBOTULINUMTOXINA
     Indication: SKIN WRINKLING
     Dosage: ?          OTHER FREQUENCY:6 MONTHS;?
     Route: 030
  2. DYSPORT [Suspect]
     Active Substance: ABOBOTULINUMTOXINA
     Indication: PROPHYLAXIS
     Dosage: ?          OTHER FREQUENCY:6 MONTHS;?
     Route: 030

REACTIONS (2)
  - Drug hypersensitivity [None]
  - Urticaria [None]

NARRATIVE: CASE EVENT DATE: 20201012
